FAERS Safety Report 20237612 (Version 2)
Quarter: 2022Q1

REPORT INFORMATION
  Report Type: Report from Study
  Country: US (occurrence: US)
  Receive Date: 20211228
  Receipt Date: 20220124
  Transmission Date: 20220424
  Serious: Yes (Other)
  Sender: FDA-Public Use
  Company Number: US-GILEAD-2021-0561747

PATIENT
  Sex: Female

DRUGS (2)
  1. AMBRISENTAN [Suspect]
     Active Substance: AMBRISENTAN
     Indication: Pulmonary hypertension
     Dosage: 10 MG, QD
     Route: 065
     Dates: start: 20180405
  2. ADEMPAS [Suspect]
     Active Substance: RIOCIGUAT
     Indication: Product used for unknown indication
     Route: 065

REACTIONS (12)
  - Angina pectoris [Unknown]
  - Oxygen saturation decreased [Unknown]
  - Bedridden [Not Recovered/Not Resolved]
  - Heart rate increased [Unknown]
  - Feeling hot [Unknown]
  - Malaise [Unknown]
  - Asthenia [Unknown]
  - Palpitations [Unknown]
  - Tachycardia [Unknown]
  - Hypotension [Unknown]
  - Tinnitus [Unknown]
  - Fatigue [Unknown]
